FAERS Safety Report 10045892 (Version 1)
Quarter: 2014Q1

REPORT INFORMATION
  Report Type: Report from Study
  Country: CZ (occurrence: CZ)
  Receive Date: 20140329
  Receipt Date: 20140329
  Transmission Date: 20141002
  Serious: Yes (Hospitalization)
  Sender: FDA-Public Use
  Company Number: CZ-ROCHE-1371968

PATIENT
  Age: 78 Year
  Sex: Female
  Weight: 68 kg

DRUGS (15)
  1. RITUXIMAB [Suspect]
     Indication: B-CELL LYMPHOMA
     Dosage: DATE OF MOST RECENT DOSE (500 ML; DOSE CONCENTRATION: 1.4 MG/ML) ON 05/FEB/2014
     Route: 042
     Dates: start: 20131114
  2. CYCLOPHOSPHAMIDE [Suspect]
     Indication: B-CELL LYMPHOMA
     Dosage: DATE OF LAST DOSE (1305 MG) PRIOR TO SAE ON 05/FEB/2014
     Route: 042
     Dates: start: 20131114
  3. DOXORUBICIN [Suspect]
     Indication: B-CELL LYMPHOMA
     Dosage: DATE OF LAST DOSE (87MG) PRIOR TO SAE ON 05/FEB/2014
     Route: 042
     Dates: start: 20131114
  4. VINCRISTINE [Suspect]
     Indication: B-CELL LYMPHOMA
     Dosage: DATE OF LAST DOSE (1MG) PRIOR TO SAE ON 05/FEB/2014
     Route: 050
  5. PREDNISONE [Suspect]
     Indication: B-CELL LYMPHOMA
     Dosage: DATE OF LAST DOSE (100MG) PRIOR TO SAE ON 10/FEB/2014
     Route: 048
     Dates: start: 20131114
  6. KALNORMIN [Concomitant]
     Indication: HYPOKALAEMIA
     Route: 065
     Dates: start: 20131223
  7. ZEFFIX [Concomitant]
     Route: 065
     Dates: start: 20131115
  8. LORADUR MITE [Concomitant]
     Indication: HYPERTENSION
  9. NITRESAN [Concomitant]
     Indication: HYPERTENSION
  10. PARACETAMOL [Concomitant]
     Route: 065
     Dates: start: 20140205, end: 20140205
  11. ZOFRAN [Concomitant]
     Indication: PROPHYLAXIS OF NAUSEA AND VOMITING
     Route: 065
     Dates: start: 20140205, end: 20140205
  12. HELICID [Concomitant]
     Indication: PROPHYLAXIS AGAINST GASTROINTESTINAL ULCER
     Route: 065
     Dates: start: 20140206, end: 20140210
  13. DEGAN [Concomitant]
     Route: 065
     Dates: start: 20140206, end: 20140210
  14. ZARZIO [Concomitant]
     Indication: PROPHYLAXIS
     Route: 065
     Dates: start: 20140213, end: 20140215
  15. ZOLPIDEM [Concomitant]
     Indication: INSOMNIA
     Route: 065
     Dates: start: 20131203

REACTIONS (1)
  - Deep vein thrombosis [Recovered/Resolved]
